FAERS Safety Report 4760419-6 (Version None)
Quarter: 2005Q3

REPORT INFORMATION
  Report Type: 
  Country: None (occurrence: None)
  Receive Date: 20050902
  Receipt Date: 20050803
  Transmission Date: 20060218
  Serious: Yes (Hospitalization)
  Sender: FDA-Public Use
  Company Number: 2005SE04479

PATIENT
  Age: 30183 Day
  Sex: Female

DRUGS (11)
  1. SELO-ZOK [Suspect]
     Indication: HYPERTENSION
     Route: 048
     Dates: start: 20050522, end: 20050601
  2. NORVASC [Suspect]
     Indication: HYPERTENSION
     Route: 048
     Dates: start: 20050522, end: 20050601
  3. CALCIGRAN FORTE [Concomitant]
     Route: 048
  4. NEXIUM [Concomitant]
     Route: 048
  5. LEVAXIN [Concomitant]
     Route: 048
  6. SEROXAT [Concomitant]
     Route: 048
  7. FOSAMAX [Concomitant]
     Route: 048
  8. PRAVACHOL [Concomitant]
     Route: 048
  9. PREDNISOLONE [Concomitant]
     Route: 048
  10. MAREVAN [Concomitant]
     Route: 048
  11. COZAAR [Concomitant]
     Route: 048

REACTIONS (6)
  - DIARRHOEA [None]
  - DIZZINESS [None]
  - FEELING HOT [None]
  - LISTLESS [None]
  - NAUSEA [None]
  - PAIN [None]
